FAERS Safety Report 4539741-4 (Version None)
Quarter: 2004Q4

REPORT INFORMATION
  Report Type: 
  Country: None (occurrence: None)
  Receive Date: 20041222
  Receipt Date: 20041215
  Transmission Date: 20050328
  Serious: Yes (Other)
  Sender: FDA-Public Use
  Company Number: 200420755BWH

PATIENT
  Age: 38 Year
  Sex: Female
  Weight: 43.5453 kg

DRUGS (4)
  1. CIPRO [Suspect]
     Indication: GASTROENTERITIS
     Dosage: 500 MG, BID, ORAL
     Route: 048
     Dates: start: 20040915, end: 20040922
  2. CIPRO [Suspect]
     Indication: INFECTION
     Dosage: 500 MG, BID, ORAL
     Route: 048
     Dates: start: 20040915, end: 20040922
  3. ZANTAC [Concomitant]
  4. ANTI-MICROBIAL AGENT [Concomitant]

REACTIONS (4)
  - AFFECT LABILITY [None]
  - CONVULSION [None]
  - HYPOREFLEXIA [None]
  - PSEUDODEMENTIA [None]
